FAERS Safety Report 13929083 (Version 3)
Quarter: 2018Q4

REPORT INFORMATION
  Report Type: Spontaneous
  Country: US (occurrence: US)
  Receive Date: 20170901
  Receipt Date: 20181212
  Transmission Date: 20190204
  Serious: No
  Sender: FDA-Public Use
  Company Number: US-DSJP-DSU-2017-133784

PATIENT

DRUGS (1)
  1. BENICAR HCT [Suspect]
     Active Substance: HYDROCHLOROTHIAZIDE\OLMESARTAN MEDOXOMIL
     Indication: HYPERTENSIVE HEART DISEASE
     Dosage: 40/25MG DAILY
     Route: 048
     Dates: start: 20070709, end: 20151124

REACTIONS (7)
  - Intestinal metaplasia [Not Recovered/Not Resolved]
  - Gastric polyps [Not Recovered/Not Resolved]
  - Large intestine polyp [Recovering/Resolving]
  - Sprue-like enteropathy [Recovering/Resolving]
  - Constipation [Not Recovered/Not Resolved]
  - Diverticulum intestinal [Unknown]
  - Reactive gastropathy [Unknown]

NARRATIVE: CASE EVENT DATE: 2007
